FAERS Safety Report 7261089-8 (Version None)
Quarter: 2011Q1

REPORT INFORMATION
  Report Type: 
  Country: None (occurrence: None)
  Receive Date: 20110130
  Receipt Date: 20101227
  Transmission Date: 20110831
  Serious: No
  Sender: FDA-Public Use
  Company Number: US-ABBOTT-10P-163-0694234-00

PATIENT
  Sex: Male
  Weight: 68.1 kg

DRUGS (4)
  1. HUMIRA [Suspect]
     Indication: COLITIS ULCERATIVE
  2. HUMIRA [Suspect]
     Indication: CROHN'S DISEASE
     Route: 058
  3. MERCAPTOPURINE [Concomitant]
     Indication: COLITIS ULCERATIVE
  4. MERCAPTOPURINE [Concomitant]
     Indication: CROHN'S DISEASE

REACTIONS (3)
  - DRUG DOSE OMISSION [None]
  - RASH [None]
  - INJECTION SITE HAEMATOMA [None]
